FAERS Safety Report 8525063-3 (Version None)
Quarter: 2012Q3

REPORT INFORMATION
  Report Type: 
  Country: None (occurrence: None)
  Receive Date: 20120720
  Receipt Date: 20120717
  Transmission Date: 20120928
  Serious: Yes (Other)
  Sender: FDA-Public Use
  Company Number: US-ROCHE-1076609

PATIENT
  Sex: Female
  Weight: 98.518 kg

DRUGS (1)
  1. BONIVA [Suspect]
     Indication: PRODUCT USED FOR UNKNOWN INDICATION

REACTIONS (16)
  - PELVIC FRACTURE [None]
  - PUBIS FRACTURE [None]
  - ARTHRITIS [None]
  - LOWER LIMB FRACTURE [None]
  - SPINAL FRACTURE [None]
  - ANKLE FRACTURE [None]
  - HUMERUS FRACTURE [None]
  - STRESS FRACTURE [None]
  - TIBIA FRACTURE [None]
  - ACCIDENT [None]
  - AMPUTATION [None]
  - WRIST FRACTURE [None]
  - FALL [None]
  - LEG AMPUTATION [None]
  - MULTIPLE FRACTURES [None]
  - CONDITION AGGRAVATED [None]
